FAERS Safety Report 9992565 (Version 1)
Quarter: 2014Q1

REPORT INFORMATION
  Report Type: Spontaneous
  Country: US (occurrence: US)
  Receive Date: 20140310
  Receipt Date: 20140310
  Transmission Date: 20141002
  Serious: Yes (Other)
  Sender: FDA-Public Use
  Company Number: US-BAYER-2014-033219

PATIENT
  Age: 89 Year
  Sex: Male
  Weight: 77 kg

DRUGS (5)
  1. ALEVE TABLET [Suspect]
     Indication: MUSCULOSKELETAL PAIN
     Dosage: 1 DF, BID
     Route: 048
     Dates: start: 20140226
  2. HYDRAZIDE [HYDROCHLOROTHIAZIDE] [Concomitant]
  3. ALLOPURINOL [Concomitant]
  4. PRAVASTATIN SODIUM [Concomitant]
  5. LISINOPRIL [Concomitant]

REACTIONS (2)
  - Haemorrhoidal haemorrhage [Not Recovered/Not Resolved]
  - Expired drug administered [None]
